FAERS Safety Report 9773795 (Version 2)
Quarter: 2013Q4

REPORT INFORMATION
  Report Type: Spontaneous
  Country: GB (occurrence: GB)
  Receive Date: 20131220
  Receipt Date: 20131223
  Transmission Date: 20140711
  Serious: Yes (Other)
  Sender: FDA-Public Use
  Company Number: GB-009507513-1312GBR007385

PATIENT
  Sex: Male

DRUGS (3)
  1. THERAPY UNSPECIFIED [Suspect]
  2. FINASTERIDE [Suspect]
     Indication: PROSTATIC DISORDER
     Dosage: UNK
  3. BISOPROLOL [Suspect]
     Dosage: 10 MG

REACTIONS (3)
  - Genital haemorrhage [Unknown]
  - Genital discomfort [Unknown]
  - Pollakiuria [Unknown]
